FAERS Safety Report 7768663-0 (Version None)
Quarter: 2011Q3

REPORT INFORMATION
  Report Type: 
  Country: None (occurrence: None)
  Receive Date: 20110922
  Receipt Date: 20110318
  Transmission Date: 20111222
  Serious: Yes (Other)
  Sender: FDA-Public Use
  Company Number: US-ASTRAZENECA-2009UW11602

PATIENT
  Age: 34 Year
  Sex: Male
  Weight: 126.6 kg

DRUGS (11)
  1. NEURONTIN [Concomitant]
     Dosage: 400 MG
     Dates: start: 20001128
  2. ZYPREXA [Concomitant]
     Dosage: 10 MG
     Dates: start: 20001128
  3. ABILIFY [Concomitant]
     Dates: start: 20050101
  4. SEROQUEL [Suspect]
     Indication: BIPOLAR DISORDER
     Dosage: 100 MG, 3 TABS
     Route: 048
     Dates: start: 20001226
  5. SEROQUEL [Suspect]
     Dosage: 100 - 800 MG
     Route: 048
     Dates: start: 20001226, end: 20080701
  6. SEROQUEL [Suspect]
     Dosage: 100 - 800 MG
     Route: 048
     Dates: start: 20001226, end: 20080701
  7. SEROQUEL [Suspect]
     Indication: SCHIZOPHRENIA
     Dosage: 100 MG, 3 TABS
     Route: 048
     Dates: start: 20001226
  8. ABILIFY [Concomitant]
     Dates: start: 20100101
  9. LORAZPEM [Concomitant]
  10. CLONAZEPAM [Concomitant]
     Dosage: 0.5 MG
     Dates: start: 20001209
  11. HALDOL [Concomitant]
     Dates: start: 19980101

REACTIONS (7)
  - PALPITATIONS [None]
  - BLOOD CHOLESTEROL INCREASED [None]
  - TYPE 2 DIABETES MELLITUS [None]
  - OBESITY [None]
  - DYSPNOEA [None]
  - ERECTILE DYSFUNCTION [None]
  - DRY MOUTH [None]
